FAERS Safety Report 6374779-6 (Version None)
Quarter: 2009Q3

REPORT INFORMATION
  Report Type: 
  Country: None (occurrence: None)
  Receive Date: 20090924
  Receipt Date: 20090914
  Transmission Date: 20100115
  Serious: Yes (Other)
  Sender: FDA-Public Use
  Company Number: PHEH2009US11469

PATIENT
  Sex: Male
  Weight: 82.5 kg

DRUGS (2)
  1. GLEEVEC [Suspect]
     Indication: CHRONIC MYELOID LEUKAEMIA
     Dosage: 600 MG, QD
     Route: 048
     Dates: start: 20090709
  2. LORCET-HD [Concomitant]

REACTIONS (5)
  - ANOSMIA [None]
  - BLINDNESS TRANSIENT [None]
  - DECREASED APPETITE [None]
  - EYE IRRITATION [None]
  - VISUAL IMPAIRMENT [None]
